FAERS Safety Report 10530463 (Version 5)
Quarter: 2021Q4

REPORT INFORMATION
  Report Type: Spontaneous
  Country: GB (occurrence: GB)
  Receive Date: 20141021
  Receipt Date: 20211021
  Transmission Date: 20220303
  Serious: Yes (Life-Threatening, Hospitalization, Other)
  Sender: FDA-Public Use
  Company Number: GB-NOVARTISPH-PHHY2014GB136011

PATIENT
  Age: 29 Year
  Sex: Female

DRUGS (12)
  1. ACETAMINOPHEN [Suspect]
     Active Substance: ACETAMINOPHEN
     Indication: Pelvic pain
     Dosage: 4 DF, QD (UP TO FOUR DOSES PER DAY, 1 TRIMESTER)
     Route: 048
  2. ACETAMINOPHEN [Suspect]
     Active Substance: ACETAMINOPHEN
     Indication: Pelvic girdle pain
     Dosage: UNK
     Route: 064
  3. ACETAMINOPHEN [Suspect]
     Active Substance: ACETAMINOPHEN
     Dosage: 4 MG, QID (1 TRIMESTER)
     Route: 048
  4. COCODAMOL [Suspect]
     Active Substance: ACETAMINOPHEN\CODEINE PHOSPHATE
     Indication: Pelvic pain
     Dosage: 4 MG, QID (4, QID, GESTATION PERIOD 2 (TRIMESTER))
     Route: 048
  5. COCODAMOL [Suspect]
     Active Substance: ACETAMINOPHEN\CODEINE PHOSPHATE
     Indication: Pelvic girdle pain
     Dosage: 16 MG, QD (2 TRIMESTER)
     Route: 048
  6. COCODAMOL [Suspect]
     Active Substance: ACETAMINOPHEN\CODEINE PHOSPHATE
     Dosage: UNK UNK, QID (2 TRIMESTER)
     Route: 048
  7. COCODAMOL [Suspect]
     Active Substance: ACETAMINOPHEN\CODEINE PHOSPHATE
     Dosage: UNK (2 TRIMESTER)
     Route: 062
  8. COCODAMOL [Suspect]
     Active Substance: ACETAMINOPHEN\CODEINE PHOSPHATE
     Dosage: 4 MG, QD (2 TRIMESTER)
     Route: 048
  9. CEPHRADINE [Concomitant]
     Active Substance: CEPHRADINE
     Indication: Product used for unknown indication
     Dosage: UNK
     Route: 065
  10. ENOXAPARIN [Concomitant]
     Active Substance: ENOXAPARIN
     Indication: Product used for unknown indication
     Dosage: UNK
     Route: 065
  11. FLUOXETINE [Concomitant]
     Active Substance: FLUOXETINE HYDROCHLORIDE
     Indication: Product used for unknown indication
     Dosage: UNK
     Route: 065
  12. METRONIDAZOLE [Concomitant]
     Active Substance: METRONIDAZOLE
     Indication: Pyelonephritis
     Dosage: UNK
     Route: 065

REACTIONS (20)
  - Consciousness fluctuating [Unknown]
  - Premature labour [Unknown]
  - Malaise [Recovered/Resolved]
  - Asthenia [Unknown]
  - Asthenopia [Unknown]
  - Hepatotoxicity [Recovered/Resolved with Sequelae]
  - Maternal exposure during pregnancy [Recovered/Resolved]
  - Liver disorder [Recovered/Resolved]
  - Hepatic failure [Recovered/Resolved]
  - Fear of death [Unknown]
  - Foetal monitoring abnormal [Unknown]
  - Uterine hypertonus [Unknown]
  - Gait inability [Unknown]
  - Depressed level of consciousness [Unknown]
  - Crying [Unknown]
  - Fear [Unknown]
  - Feeling guilty [Unknown]
  - Incorrect product administration duration [Unknown]
  - Developmental delay [Unknown]
  - Accidental overdose [Recovered/Resolved]
